FAERS Safety Report 6173305-4 (Version None)
Quarter: 2009Q2

REPORT INFORMATION
  Report Type: 
  Country: None (occurrence: None)
  Receive Date: 20090430
  Receipt Date: 20090422
  Transmission Date: 20091009
  Serious: No
  Sender: FDA-Public Use
  Company Number: TR-AVENTIS-200914250GDDC

PATIENT
  Age: 26 Year
  Sex: Female
  Weight: 59 kg

DRUGS (1)
  1. ARAVA [Suspect]
     Indication: RHEUMATOID ARTHRITIS
     Dosage: DOSE QUANTITY: 1
     Route: 048
     Dates: start: 20060101, end: 20090407

REACTIONS (1)
  - DRUG EXPOSURE DURING PREGNANCY [None]
